FAERS Safety Report 22202350 (Version 3)
Quarter: 2024Q2

REPORT INFORMATION
  Report Type: Spontaneous
  Country: US (occurrence: US)
  Receive Date: 20230412
  Receipt Date: 20240422
  Transmission Date: 20240716
  Serious: Yes (Other)
  Sender: FDA-Public Use
  Company Number: US-PFIZER INC-2021640925

PATIENT
  Age: 78 Year
  Sex: Female
  Weight: 84.354 kg

DRUGS (1)
  1. IBRANCE [Suspect]
     Active Substance: PALBOCICLIB
     Dosage: 125 MG

REACTIONS (5)
  - Lower limb fracture [Recovering/Resolving]
  - Mobility decreased [Unknown]
  - Obstructive airways disorder [Unknown]
  - Respiratory tract irritation [Unknown]
  - Hypersensitivity [Unknown]
